FAERS Safety Report 4382783-2 (Version None)
Quarter: 2004Q2

REPORT INFORMATION
  Report Type: 
  Country: None (occurrence: None)
  Receive Date: 20040603
  Receipt Date: 20040301
  Transmission Date: 20050107
  Serious: Yes (Other)
  Sender: FDA-Public Use
  Company Number: 200411659US

PATIENT
  Sex: 0

DRUGS (2)
  1. ENOXAPARIN SODIUM [Suspect]
     Dosage: 1 MG/KG  SC
     Route: 058
  2. HEPARIN [Concomitant]

REACTIONS (1)
  - PULMONARY EMBOLISM [None]
